FAERS Safety Report 8960173 (Version 1)
Quarter: 2012Q4

REPORT INFORMATION
  Report Type: Report from Study
  Country: IT (occurrence: IT)
  Receive Date: 20121211
  Receipt Date: 20121211
  Transmission Date: 20130627
  Serious: Yes (Hospitalization)
  Sender: FDA-Public Use
  Company Number: IT-BAXTER-909#5#200321234000

PATIENT
  Age: 61 Year
  Sex: Female
  Weight: 163 kg

DRUGS (6)
  1. ENDOXAN BAXTER [Suspect]
     Indication: CARCINOMA NOS
     Route: 042
     Dates: start: 20030509, end: 20030613
  2. DOXORUBICIN HYDROCHLORIDE [Suspect]
     Indication: CARCINOMA NOS
     Route: 042
     Dates: start: 20021210, end: 20030124
  3. PACLITAXEL [Suspect]
     Indication: CARCINOMA NOS
     Route: 042
     Dates: start: 20021210, end: 20030124
  4. PACLITAXEL [Suspect]
     Route: 042
     Dates: start: 20030214, end: 20030418
  5. METHOTREXATE [Suspect]
     Indication: CARCINOMA NOS
     Route: 042
     Dates: start: 20030509, end: 20030613
  6. FLUOROURACIL [Suspect]
     Indication: CARCINOMA NOS
     Route: 042
     Dates: start: 20030509, end: 20030613

REACTIONS (1)
  - Deep vein thrombosis [Recovered/Resolved]
